FAERS Safety Report 6144912-X (Version None)
Quarter: 2009Q2

REPORT INFORMATION
  Report Type: 
  Country: None (occurrence: None)
  Receive Date: 20090406
  Receipt Date: 20090326
  Transmission Date: 20091009
  Serious: Yes (Hospitalization)
  Sender: FDA-Public Use
  Company Number: US-MERCK-0904USA00471

PATIENT
  Age: 70 Year
  Sex: Female

DRUGS (2)
  1. DECADRON [Suspect]
     Indication: HEADACHE
     Route: 048
     Dates: start: 20010901
  2. DILANTIN [Concomitant]
     Route: 065

REACTIONS (3)
  - DRUG INEFFECTIVE [None]
  - DRUG INTOLERANCE [None]
  - HEADACHE [None]
